FAERS Safety Report 8213051-6 (Version None)
Quarter: 2012Q1

REPORT INFORMATION
  Report Type: 
  Country: None (occurrence: None)
  Receive Date: 20120315
  Receipt Date: 20120309
  Transmission Date: 20120608
  Serious: Yes (Other)
  Sender: FDA-Public Use
  Company Number: US-PFIZER INC-2012064747

PATIENT
  Sex: Female

DRUGS (5)
  1. NEURONTIN [Suspect]
     Dosage: UNK
  2. ALBUTEROL [Concomitant]
     Dosage: 90 UG, UNK
  3. ALBUTEROL [Concomitant]
     Dosage: 2.5 MG/3 ML (0.083%)
  4. LIPITOR [Suspect]
     Dosage: UNK
  5. TYLENOL [Concomitant]
     Indication: ARTHRITIS
     Dosage: UNK
     Route: 048

REACTIONS (23)
  - TYPE 1 DIABETES MELLITUS [None]
  - RENAL FAILURE [None]
  - NECK PAIN [None]
  - BRONCHITIS CHRONIC [None]
  - DIABETIC RETINOPATHY [None]
  - PNEUMONIA [None]
  - OSTEOARTHRITIS [None]
  - HYPOKALAEMIA [None]
  - SLEEP APNOEA SYNDROME [None]
  - DEPRESSION [None]
  - ASTHMA [None]
  - VERTIGO [None]
  - OBESITY [None]
  - CHRONIC SINUSITIS [None]
  - BACK PAIN [None]
  - ANXIETY [None]
  - VITAMIN B12 DEFICIENCY [None]
  - ESSENTIAL HYPERTENSION [None]
  - TUBERCULIN TEST POSITIVE [None]
  - GASTROOESOPHAGEAL REFLUX DISEASE [None]
  - HYPOTHYROIDISM [None]
  - BLOOD CHOLESTEROL INCREASED [None]
  - NEUROPATHY PERIPHERAL [None]
